FAERS Safety Report 10282182 (Version 2)
Quarter: 2014Q3

REPORT INFORMATION
  Report Type: Spontaneous
  Country: US (occurrence: US)
  Receive Date: 20140707
  Receipt Date: 20140730
  Transmission Date: 20150326
  Serious: Yes (Death, Hospitalization)
  Sender: FDA-Public Use
  Company Number: US-PFIZER INC-2014184499

PATIENT
  Age: 65 Year
  Sex: Female

DRUGS (23)
  1. SOLU-MEDROL [Concomitant]
     Active Substance: METHYLPREDNISOLONE SODIUM SUCCINATE
     Dosage: 40 MG, (EVERY 8 HOURS)
     Dates: start: 20140627, end: 20140628
  2. VFEND [Suspect]
     Active Substance: VORICONAZOLE
     Indication: BRONCHOPULMONARY ASPERGILLOSIS
     Dosage: 200 MG, 2X/DAY (EVERY 12 HOUR)
     Route: 048
     Dates: start: 20140516
  3. VFEND [Suspect]
     Active Substance: VORICONAZOLE
     Dosage: 200 MG, 2X/DAY (EVERY 12 HOUR)
     Route: 048
     Dates: start: 20140626, end: 20140628
  4. PROTONIX [Concomitant]
     Active Substance: PANTOPRAZOLE SODIUM
     Dosage: 40MG IN NS 10ML IV SYRINGE
     Dates: start: 20140626, end: 20140628
  5. SENOKOT [Concomitant]
     Active Substance: SENNOSIDES
     Dosage: 2 DF, (2 TAB NIGHTLY)
     Dates: start: 20140626, end: 20140628
  6. ELAVIL [Concomitant]
     Active Substance: AMITRIPTYLINE HYDROCHLORIDE
     Dosage: 25 MG, (NIGHTLY)
     Dates: start: 20140626, end: 20140628
  7. XALATAN [Concomitant]
     Active Substance: LATANOPROST
     Dosage: 1 GTT, (NIGHTLY)
     Route: 047
     Dates: start: 20140626, end: 20140628
  8. SOLU-MEDROL [Concomitant]
     Active Substance: METHYLPREDNISOLONE SODIUM SUCCINATE
     Dosage: 125 MG, (ONCE)
     Dates: start: 20140626, end: 20140626
  9. ZOFRAN [Concomitant]
     Active Substance: ONDANSETRON HYDROCHLORIDE
     Dosage: 8 MG, AS NEEDED (EVERY 8 HOURS PRN)
     Dates: start: 20140626, end: 20140628
  10. ATROVENT [Concomitant]
     Active Substance: IPRATROPIUM BROMIDE
     Dosage: UNK, (0.02% NEBULIZER SOLUTION 0.5MG) ONCE
     Route: 055
     Dates: start: 20140626, end: 20140627
  11. PROVENTIL SOLUTION [Concomitant]
     Dosage: UNK (4TIMES DAILY)
     Route: 055
     Dates: start: 20140626, end: 20140628
  12. VFEND [Suspect]
     Active Substance: VORICONAZOLE
     Indication: PULMONARY MYCOSIS
     Dosage: UNK
     Route: 048
     Dates: start: 201404
  13. MORPHINE [Concomitant]
     Active Substance: MORPHINE
     Dosage: 2 MG, AS NEEDED (EVERY 2 HOUR PRN)
     Dates: start: 20140626, end: 20140628
  14. ZOFRAN [Concomitant]
     Active Substance: ONDANSETRON HYDROCHLORIDE
     Dosage: 4 MG, AS NEEDED (EVERY 6 HOURS PRN)
     Dates: start: 20140626, end: 20140628
  15. NORVASC [Concomitant]
     Active Substance: AMLODIPINE BESYLATE
     Dosage: 5 MG, DAILY
     Dates: start: 20140626, end: 20140628
  16. ADVAIR HFA [Concomitant]
     Active Substance: FLUTICASONE PROPIONATE\SALMETEROL XINAFOATE
     Dosage: UNK,FLUTICASONE PROPIONATE 100 MCG /SALMETEROL XINAFOATE 50 MCG,1 PUFF (EVERY 12 HOURS)
     Dates: start: 20140626, end: 20140628
  17. ATROVENT [Concomitant]
     Active Substance: IPRATROPIUM BROMIDE
     Dosage: UNK, (0.02% NEBULIZER SOLUTION 0.5 MG) (4 TIMES DAILY, AS NEEDED)
     Route: 055
     Dates: start: 20140626, end: 20140628
  18. SOLU-MEDROL [Concomitant]
     Active Substance: METHYLPREDNISOLONE SODIUM SUCCINATE
     Dosage: 40 MG, (EVERY 6 HOURS)
     Dates: start: 20140626, end: 20140626
  19. ATIVAN [Concomitant]
     Active Substance: LORAZEPAM
     Dosage: 1 MG, AS NEEDED (EVERY 2 HOURS PRN)
     Dates: start: 20140626, end: 20140628
  20. MARINOL [Concomitant]
     Active Substance: DRONABINOL
     Dosage: 5 MG, 2X/DAY (BEFORE MEALS)
     Dates: start: 20140627, end: 20140628
  21. CYMBALTA [Concomitant]
     Active Substance: DULOXETINE HYDROCHLORIDE
     Dosage: 60 MG, DAILY
     Dates: start: 20140626, end: 20140628
  22. SYNTHROID [Concomitant]
     Active Substance: LEVOTHYROXINE SODIUM
     Dosage: 100 UG, DAILY (BEFORE BREAKFAST)
     Dates: start: 20140627, end: 20140628
  23. PROVENTIL SOLUTION [Concomitant]
     Dosage: UNK (ONCE)
     Route: 055
     Dates: start: 20140626, end: 20140627

REACTIONS (2)
  - Oesophageal carcinoma [Fatal]
  - Disease progression [Fatal]

NARRATIVE: CASE EVENT DATE: 2014
